FAERS Safety Report 9077196 (Version 1)
Quarter: 2013Q1

REPORT INFORMATION
  Report Type: Report from Study
  Country: JP (occurrence: JP)
  Receive Date: 20130130
  Receipt Date: 20130130
  Transmission Date: 20140127
  Serious: Yes (Other)
  Sender: FDA-Public Use
  Company Number: JP-009507513-1301JPN010615

PATIENT
  Age: 64 Year
  Sex: Female
  Weight: 55 kg

DRUGS (11)
  1. PEGINTRON [Suspect]
     Indication: CHRONIC HEPATITIS C
     Dosage: 1.5 MICROGRAM PER KILOGRAM, QW
     Route: 058
     Dates: start: 20120925, end: 20121126
  2. REBETOL [Suspect]
     Indication: CHRONIC HEPATITIS C
     Dosage: 400 MG, QD
     Route: 048
     Dates: start: 20120925, end: 20121028
  3. REBETOL [Suspect]
     Dosage: 200 MG, QD
     Route: 048
     Dates: start: 20121029, end: 20121130
  4. TELAVIC [Suspect]
     Indication: CHRONIC HEPATITIS C
     Dosage: 1500 MG, QD
     Route: 048
     Dates: start: 20120925, end: 20121008
  5. TELAVIC [Suspect]
     Dosage: 1000 MG, QD
     Route: 048
     Dates: start: 20121009, end: 20121112
  6. TELAVIC [Suspect]
     Dosage: 1000 MG, QD
     Route: 048
     Dates: start: 20121126, end: 20121130
  7. AMOBAN [Concomitant]
     Indication: INSOMNIA
     Dosage: 7.5 MG, PRN
     Route: 048
     Dates: end: 20121021
  8. THYRADIN-S [Concomitant]
     Indication: HYPOTHYROIDISM
     Dosage: 50 MICROGRAM, QD
     Route: 048
  9. BLOSTAR M [Concomitant]
     Indication: GASTRITIS
     Dosage: 20 MG, QD
     Route: 048
  10. LENDORMIN [Concomitant]
     Indication: INSOMNIA
     Dosage: 0.25 MG, QD
     Route: 048
     Dates: start: 20121022
  11. GASTER D [Concomitant]
     Indication: GASTRITIS
     Dosage: 20 MG, QD
     Route: 048

REACTIONS (2)
  - Decreased appetite [Recovered/Resolved]
  - Depression [Unknown]
